FAERS Safety Report 6837873-9 (Version None)
Quarter: 2010Q3

REPORT INFORMATION
  Report Type: 
  Country: None (occurrence: None)
  Receive Date: 20100708
  Receipt Date: 20100627
  Transmission Date: 20110219
  Serious: Yes (Other)
  Sender: FDA-Public Use
  Company Number: GB-DEXPHARM-20100630

PATIENT
  Age: 66 Year
  Sex: Female

DRUGS (6)
  1. OMEPRAZOLE [Suspect]
     Indication: PANCREATITIS
     Route: 048
     Dates: end: 20090101
  2. ALFACALCIDOL [Concomitant]
  3. ATENOLOL [Concomitant]
  4. CALCICHEW [Concomitant]
  5. PREMARIN [Concomitant]
  6. RABEPRAZOLE SODIUM [Suspect]
     Dosage: 40 MG MILLIGRAM (S)
     Route: 048
     Dates: start: 20090101, end: 20100301

REACTIONS (1)
  - HYPOMAGNESAEMIA [None]
